FAERS Safety Report 4901884-0 (Version None)
Quarter: 2006Q1

REPORT INFORMATION
  Report Type: 
  Country: None (occurrence: None)
  Receive Date: 20060206
  Receipt Date: 20051230
  Transmission Date: 20060701
  Serious: Yes (Other)
  Sender: FDA-Public Use
  Company Number: SE-ABBOTT-06P-150-0321169-00

PATIENT
  Age: 61 Year
  Sex: Male

DRUGS (8)
  1. NORVIR [Suspect]
     Indication: VIRAL INFECTION
     Route: 048
     Dates: start: 20050129
  2. LAMIVUDINE [Suspect]
     Indication: VIRAL INFECTION
     Route: 048
     Dates: start: 20050129
  3. VIREAD [Suspect]
     Indication: VIRAL INFECTION
     Route: 048
     Dates: start: 20050129
  4. REYATAZ [Suspect]
     Indication: VIRAL INFECTION
     Route: 048
     Dates: start: 20050129
  5. PARACETAMOL [Concomitant]
     Indication: DRUG USE FOR UNKNOWN INDICATION
     Route: 048
  6. BACTRIM [Concomitant]
     Indication: DRUG USE FOR UNKNOWN INDICATION
     Route: 048
  7. DICLOFENAC [Concomitant]
     Indication: DRUG USE FOR UNKNOWN INDICATION
     Route: 048
  8. TRAMADOL HCL [Concomitant]
     Indication: DRUG USE FOR UNKNOWN INDICATION
     Route: 048

REACTIONS (1)
  - OSTEONECROSIS [None]
